FAERS Safety Report 4516346-2 (Version None)
Quarter: 2004Q4

REPORT INFORMATION
  Report Type: 
  Country: None (occurrence: None)
  Receive Date: 20041202
  Receipt Date: 20040902
  Transmission Date: 20050328
  Serious: No
  Sender: FDA-Public Use
  Company Number: 2004058073

PATIENT
  Age: 9 Year
  Sex: Male

DRUGS (2)
  1. AUGMENTIN '125' [Suspect]
     Indication: SKIN INFECTION
     Route: 048
     Dates: start: 20040823
  2. BENADRYL ALLERGY [Concomitant]
     Dosage: 1TBS THREE TIMES PER DAY
     Route: 048
     Dates: start: 20040823

REACTIONS (1)
  - FAECES DISCOLOURED [None]
